FAERS Safety Report 16348754 (Version 1)
Quarter: 2019Q2

REPORT INFORMATION
  Report Type: Spontaneous
  Country: GB (occurrence: GB)
  Receive Date: 20190523
  Receipt Date: 20190523
  Transmission Date: 20190711
  Serious: Yes (Hospitalization, Other)
  Sender: FDA-Public Use
  Company Number: GB-ACCORD-128811

PATIENT
  Age: 51 Year
  Sex: Male

DRUGS (6)
  1. PARACETAMOL COMP. [Concomitant]
     Dosage: OCCASIONAL TABLETS
  2. TEMAZEPAM. [Concomitant]
     Active Substance: TEMAZEPAM
     Dosage: 10 MG
  3. VORICONAZOLE. [Suspect]
     Active Substance: VORICONAZOLE
     Indication: ASPERGILLUS INFECTION
     Dosage: 180 MG, Q12H (I.E., 3 MG/KG)
     Route: 042
  4. DOSULEPIN HYDROCHLORIDE [Concomitant]
     Active Substance: DOTHIEPIN HYDROCHLORIDE
     Dosage: 100 MG, HS
  5. ITRACONAZOLE. [Suspect]
     Active Substance: ITRACONAZOLE
     Indication: ASPERGILLUS INFECTION
  6. DICLOFENAC [Concomitant]
     Active Substance: DICLOFENAC
     Dosage: 50 MG, TID

REACTIONS (8)
  - Feeling drunk [Unknown]
  - Respiratory failure [Unknown]
  - Drug level increased [Unknown]
  - Acute respiratory distress syndrome [Unknown]
  - Lymphopenia [Unknown]
  - Drug ineffective [Unknown]
  - Confusional state [Unknown]
  - Hypoglycaemia [Unknown]
